FAERS Safety Report 4478477-5 (Version None)
Quarter: 2004Q4

REPORT INFORMATION
  Report Type: 
  Country: None (occurrence: None)
  Receive Date: 20041014
  Receipt Date: 20041014
  Transmission Date: 20050328
  Serious: Yes (Other)
  Sender: FDA-Public Use
  Company Number: 2004073602

PATIENT
  Sex: Female

DRUGS (2)
  1. NASALCROM [Suspect]
     Indication: HYPERSENSITIVITY
     Dosage: ONE SPRAY EACH NOSTRIL Q.D. TO B.I.D., NASAL
     Route: 045
     Dates: end: 20041004
  2. ASPIRIN [Concomitant]

REACTIONS (2)
  - CATARACT OPERATION [None]
  - GLAUCOMA [None]
